FAERS Safety Report 8747461 (Version 2)
Quarter: 2012Q4

REPORT INFORMATION
  Report Type: 
  Country: US (occurrence: US)
  Receive Date: 20120827
  Receipt Date: 20121109
  Transmission Date: 20130627
  Serious: Yes (Other)
  Sender: FDA-Public Use
  Company Number: US-ASTRAZENECA-2012SE59975

PATIENT
  Age: 57 Year
  Sex: Male
  Weight: 118.8 kg

DRUGS (1)
  1. TOPROL XL [Suspect]
     Route: 048

REACTIONS (3)
  - Myocardial infarction [Unknown]
  - Vascular stenosis [Unknown]
  - Arthralgia [Unknown]
